FAERS Safety Report 14344949 (Version 1)
Quarter: 2018Q1

REPORT INFORMATION
  Report Type: Spontaneous
  Country: CA (occurrence: CA)
  Receive Date: 20180103
  Receipt Date: 20180103
  Transmission Date: 20180509
  Serious: Yes (Other)
  Sender: FDA-Public Use
  Company Number: CA-ROCHE-2048714

PATIENT
  Sex: Female

DRUGS (11)
  1. ENBREL [Suspect]
     Active Substance: ETANERCEPT
     Indication: RHEUMATOID ARTHRITIS
     Route: 065
     Dates: start: 2002
  2. PREDNISONE. [Concomitant]
     Active Substance: PREDNISONE
     Route: 065
     Dates: start: 20171012
  3. TIMOLOL. [Concomitant]
     Active Substance: TIMOLOL
     Route: 065
  4. TRAMACET [Concomitant]
     Active Substance: ACETAMINOPHEN\TRAMADOL
  5. ACTEMRA [Suspect]
     Active Substance: TOCILIZUMAB
     Indication: PRODUCT USED FOR UNKNOWN INDICATION
     Route: 065
     Dates: start: 201701, end: 20170916
  6. METHOTREXATE. [Concomitant]
     Active Substance: METHOTREXATE
  7. XELJANZ [Concomitant]
     Active Substance: TOFACITINIB CITRATE
  8. SYNTHROID [Concomitant]
     Active Substance: LEVOTHYROXINE SODIUM
  9. MOTILIUM [Concomitant]
     Active Substance: DOMPERIDONE
  10. PANTOLOC [Concomitant]
     Active Substance: PANTOPRAZOLE SODIUM
  11. MOBICOX [Concomitant]
     Active Substance: MELOXICAM

REACTIONS (7)
  - Thyroid cancer [Unknown]
  - Osteoarthritis [Unknown]
  - Ill-defined disorder [Recovering/Resolving]
  - Drug effect decreased [Unknown]
  - Glaucoma [Unknown]
  - Gait inability [Recovering/Resolving]
  - Swelling [Recovering/Resolving]

NARRATIVE: CASE EVENT DATE: 2008
